FAERS Safety Report 15260112 (Version 1)
Quarter: 2018Q4

REPORT INFORMATION
  Report Type: Spontaneous
  Country: GB (occurrence: GB)
  Receive Date: 20180809
  Receipt Date: 20180809
  Transmission Date: 20190204
  Serious: Yes (Hospitalization)
  Sender: FDA-Public Use
  Company Number: GB-HIKMA PHARMACEUTICALS USA INC.-GB-H14001-18-06554

PATIENT
  Age: 65 Year
  Sex: Female

DRUGS (1)
  1. METHYLPREDNISOLONE. [Suspect]
     Active Substance: METHYLPREDNISOLONE
     Indication: ALVEOLITIS ALLERGIC
     Route: 042

REACTIONS (2)
  - Stress cardiomyopathy [Recovered/Resolved]
  - Cardiogenic shock [Recovered/Resolved]
